FAERS Safety Report 7714892-1 (Version None)
Quarter: 2011Q3

REPORT INFORMATION
  Report Type: 
  Country: None (occurrence: None)
  Receive Date: 20110829
  Receipt Date: 20110124
  Transmission Date: 20111222
  Serious: Yes (Life-Threatening, Hospitalization, Disabling, Other)
  Sender: FDA-Public Use
  Company Number: US-GLAXOSMITHKLINE-A0908624A

PATIENT
  Age: 20 Year
  Sex: Male

DRUGS (2)
  1. MALARONE [Suspect]
     Indication: MALARIA PROPHYLAXIS
     Dosage: 1TAB PER DAY
     Route: 048
     Dates: start: 20110109, end: 20110101
  2. NO CONCURRENT MEDICATION [Concomitant]

REACTIONS (4)
  - MALARIA [None]
  - PYREXIA [None]
  - PAIN [None]
  - VOMITING [None]
